FAERS Safety Report 23649614 (Version 2)
Quarter: 2024Q1

REPORT INFORMATION
  Report Type: Report from Study
  Country: US (occurrence: None)
  Receive Date: 20240319
  Receipt Date: 20240322
  Transmission Date: 20240410
  Serious: Yes (Other)
  Sender: FDA-Public Use
  Company Number: 2024A062627

PATIENT
  Age: 43 Year
  Sex: Male
  Weight: 77.7 kg

DRUGS (1)
  1. FARXIGA [Suspect]
     Active Substance: DAPAGLIFLOZIN PROPANEDIOL
     Route: 048

REACTIONS (4)
  - Multiple sclerosis [Unknown]
  - Hypertensive heart disease [Unknown]
  - Cardiac failure congestive [Unknown]
  - Gait disturbance [Unknown]
